FAERS Safety Report 25262865 (Version 1)
Quarter: 2025Q2

REPORT INFORMATION
  Report Type: Spontaneous
  Country: US (occurrence: US)
  Receive Date: 20250502
  Receipt Date: 20250502
  Transmission Date: 20250716
  Serious: Yes (Other)
  Sender: MYLAN
  Company Number: US-MYLANLABS-2025M1036241

PATIENT
  Age: 35 Year
  Sex: Female

DRUGS (20)
  1. GABAPENTIN [Suspect]
     Active Substance: GABAPENTIN
     Indication: Pain management
  2. GABAPENTIN [Suspect]
     Active Substance: GABAPENTIN
     Route: 065
  3. GABAPENTIN [Suspect]
     Active Substance: GABAPENTIN
     Route: 065
  4. GABAPENTIN [Suspect]
     Active Substance: GABAPENTIN
  5. TRAMADOL [Suspect]
     Active Substance: TRAMADOL
     Indication: Pain management
  6. TRAMADOL [Suspect]
     Active Substance: TRAMADOL
     Route: 065
  7. TRAMADOL [Suspect]
     Active Substance: TRAMADOL
     Route: 065
  8. TRAMADOL [Suspect]
     Active Substance: TRAMADOL
  9. MELOXICAM [Suspect]
     Active Substance: MELOXICAM
     Indication: Pain management
  10. MELOXICAM [Suspect]
     Active Substance: MELOXICAM
     Route: 065
  11. MELOXICAM [Suspect]
     Active Substance: MELOXICAM
     Route: 065
  12. MELOXICAM [Suspect]
     Active Substance: MELOXICAM
  13. METHOCARBAMOL [Suspect]
     Active Substance: METHOCARBAMOL
     Indication: Pain management
  14. METHOCARBAMOL [Suspect]
     Active Substance: METHOCARBAMOL
     Route: 065
  15. METHOCARBAMOL [Suspect]
     Active Substance: METHOCARBAMOL
     Route: 065
  16. METHOCARBAMOL [Suspect]
     Active Substance: METHOCARBAMOL
  17. CELECOXIB [Suspect]
     Active Substance: CELECOXIB
     Indication: Pain management
  18. CELECOXIB [Suspect]
     Active Substance: CELECOXIB
     Route: 065
  19. CELECOXIB [Suspect]
     Active Substance: CELECOXIB
     Route: 065
  20. CELECOXIB [Suspect]
     Active Substance: CELECOXIB

REACTIONS (1)
  - Treatment failure [Unknown]
